FAERS Safety Report 14175309 (Version 1)
Quarter: 2017Q4

REPORT INFORMATION
  Report Type: Spontaneous
  Country: US (occurrence: US)
  Receive Date: 20171109
  Receipt Date: 20171109
  Transmission Date: 20180321
  Serious: No
  Sender: FDA-Public Use
  Company Number: US-SA-2017SA162047

PATIENT
  Age: 21 Year
  Sex: Female

DRUGS (2)
  1. XYZAL ALLERGY 24HR [Suspect]
     Active Substance: LEVOCETIRIZINE DIHYDROCHLORIDE
     Indication: COUGH
     Route: 065
     Dates: start: 20170817, end: 20170818
  2. XYZAL ALLERGY 24HR [Suspect]
     Active Substance: LEVOCETIRIZINE DIHYDROCHLORIDE
     Indication: NEUROPATHY PERIPHERAL
     Route: 065
     Dates: start: 20170817, end: 20170818

REACTIONS (3)
  - Abdominal pain upper [Not Recovered/Not Resolved]
  - Adverse event [Unknown]
  - Pruritus generalised [Not Recovered/Not Resolved]
